FAERS Safety Report 15250091 (Version 1)
Quarter: 2018Q3

REPORT INFORMATION
  Report Type: Spontaneous
  Country: US (occurrence: US)
  Receive Date: 20180807
  Receipt Date: 20180807
  Transmission Date: 20181010
  Serious: Yes (Hospitalization, Other)
  Sender: FDA-Public Use
  Company Number: US-SA-2018SA202833

PATIENT
  Age: 79 Year
  Sex: Female

DRUGS (6)
  1. RANITIDINE. [Suspect]
     Active Substance: RANITIDINE
     Dosage: 50 MG, Q8H
     Route: 042
  2. HEPARIN [Suspect]
     Active Substance: HEPARIN SODIUM
     Dosage: 5000 U, Q12H
     Route: 058
  3. MORPHINE SALT NOT SPECIFIED [Suspect]
     Active Substance: MORPHINE
     Dosage: 1 UNK
  4. LORAZEPAM. [Suspect]
     Active Substance: LORAZEPAM
     Dosage: 1.0 UNK
     Route: 042
  5. LORAZEPAM. [Suspect]
     Active Substance: LORAZEPAM
     Dosage: 0.5 MG
     Route: 042
  6. FAMOTIDINE. [Suspect]
     Active Substance: FAMOTIDINE
     Dosage: 20 MG, Q12H
     Route: 042

REACTIONS (1)
  - Delirium [Recovered/Resolved]
